FAERS Safety Report 5221738-2 (Version None)
Quarter: 2007Q1

REPORT INFORMATION
  Report Type: 
  Country: None (occurrence: None)
  Receive Date: 20070129
  Receipt Date: 20070124
  Transmission Date: 20070707
  Serious: Yes (Death, Other)
  Sender: FDA-Public Use
  Company Number: PHBS2007JP01573

PATIENT
  Age: 76 Year
  Sex: Female

DRUGS (3)
  1. NEO DOPASTON [Suspect]
     Indication: PARKINSON'S DISEASE
     Dosage: 600 MG/DAY
  2. DROXIDOPA [Suspect]
     Indication: PARKINSON'S DISEASE
     Dosage: 1800 MG/DAY
  3. PARLODEL [Suspect]
     Indication: PARKINSON'S DISEASE
     Dosage: 22.5 MG/DAY

REACTIONS (4)
  - DEMENTIA [None]
  - GASTRIC CANCER [None]
  - GASTRIC ULCER [None]
  - STEREOTYPY [None]
